FAERS Safety Report 10251585 (Version 2)
Quarter: 2014Q3

REPORT INFORMATION
  Report Type: Spontaneous
  Country: US (occurrence: JP)
  Receive Date: 20140623
  Receipt Date: 20140711
  Transmission Date: 20150326
  Serious: Yes (Other)
  Sender: FDA-Public Use
  Company Number: 2014SP003243

PATIENT
  Sex: Female

DRUGS (4)
  1. METHOTREXATE [Suspect]
     Active Substance: METHOTREXATE
     Indication: PRODUCT USED FOR UNKNOWN INDICATION
     Route: 037
  2. BEVACIZUMAB [Concomitant]
     Active Substance: BEVACIZUMAB
  3. METHOTREXATE [Suspect]
     Active Substance: METHOTREXATE
     Indication: PRODUCT USED FOR UNKNOWN INDICATION
     Route: 037
  4. NIMUSTINE HYDROCHLORIDE [Concomitant]
     Active Substance: NIMUSTINE HYDROCHLORIDE

REACTIONS (4)
  - Pyrexia [Unknown]
  - Drug level increased [Unknown]
  - Pneumonia [Unknown]
  - Blood creatinine increased [Unknown]
